FAERS Safety Report 7070346-X (Version None)
Quarter: 2010Q4

REPORT INFORMATION
  Report Type: 
  Country: None (occurrence: None)
  Receive Date: 20101028
  Receipt Date: 20101013
  Transmission Date: 20110411
  Serious: No
  Sender: FDA-Public Use
  Company Number: US-WYE-H18165810

PATIENT
  Age: 60 Year
  Sex: Male
  Weight: 97.61 kg

DRUGS (5)
  1. ADVIL [Suspect]
     Indication: PROCEDURAL PAIN
     Dosage: 1 LIGUI-GEL EVERY 2 HOURS, AS ADVISED BY HIS PHYSICIAN
     Route: 048
     Dates: start: 20100922
  2. SIMCOR [Concomitant]
  3. ACETYLSALICYLIC ACID [Concomitant]
  4. METOPROLOL TARTRATE [Concomitant]
  5. HYDROCODONE [Concomitant]

REACTIONS (1)
  - DRUG INEFFECTIVE [None]
